FAERS Safety Report 23914223 (Version 2)
Quarter: 2024Q2

REPORT INFORMATION
  Report Type: Other
  Country: AE (occurrence: None)
  Receive Date: 20240529
  Receipt Date: 20240531
  Transmission Date: 20240716
  Serious: Yes (Other)
  Sender: FDA-Public Use
  Company Number: AE-ROCHE-3569992

PATIENT
  Sex: Male

DRUGS (1)
  1. AVASTIN [Suspect]
     Active Substance: BEVACIZUMAB
     Indication: Product used for unknown indication
     Route: 065

REACTIONS (5)
  - Metastases to peritoneum [Unknown]
  - Thrombocytopenia [Unknown]
  - Abdominal pain [Unknown]
  - Anaemia [Unknown]
  - Carcinoembryonic antigen decreased [Unknown]
